FAERS Safety Report 9187279 (Version 3)
Quarter: 2013Q2

REPORT INFORMATION
  Report Type: Report from Study
  Country: JP (occurrence: JP)
  Receive Date: 20130325
  Receipt Date: 20130603
  Transmission Date: 20140414
  Serious: Yes (Hospitalization)
  Sender: FDA-Public Use
  Company Number: JP-JNJFOC-20120806069

PATIENT
  Age: 81 Year
  Sex: Male
  Weight: 64 kg

DRUGS (9)
  1. DUROTEP MT [Suspect]
     Indication: PAIN
     Route: 062
     Dates: start: 20100922, end: 20100928
  2. DUROTEP MT [Suspect]
     Indication: PAIN
     Route: 062
     Dates: start: 20101111, end: 20110616
  3. DUROTEP MT [Suspect]
     Indication: PAIN
     Route: 062
     Dates: start: 20110616
  4. DUROTEP MT [Suspect]
     Indication: PAIN
     Route: 062
     Dates: start: 20100928, end: 20101110
  5. PREGABALIN [Concomitant]
     Indication: PAIN
     Route: 048
     Dates: start: 20101021
  6. PREGABALIN [Concomitant]
     Indication: PAIN
     Route: 048
     Dates: start: 20100928, end: 20100930
  7. PREGABALIN [Concomitant]
     Indication: PAIN
     Route: 048
     Dates: start: 20100917, end: 20100927
  8. PREGABALIN [Concomitant]
     Indication: PAIN
     Route: 048
     Dates: start: 20101001, end: 20101020
  9. MAGNESIUM OXIDE [Concomitant]
     Indication: CONSTIPATION
     Route: 048

REACTIONS (3)
  - Intestinal obstruction [Recovering/Resolving]
  - Hyperkalaemia [Recovering/Resolving]
  - Drug intolerance [Unknown]
